FAERS Safety Report 9882065 (Version 2)
Quarter: 2014Q1

REPORT INFORMATION
  Report Type: Spontaneous
  Country: JP (occurrence: JP)
  Receive Date: 20140207
  Receipt Date: 20140220
  Transmission Date: 20141002
  Serious: Yes (Other)
  Sender: FDA-Public Use
  Company Number: JP-ASTRAZENECA-2014SE07736

PATIENT
  Sex: 0

DRUGS (2)
  1. NEXIUM [Suspect]
     Route: 048
  2. OMEPRAL [Suspect]
     Route: 048

REACTIONS (2)
  - Rhabdomyolysis [Unknown]
  - Muscle injury [Unknown]
